FAERS Safety Report 4334312-7 (Version None)
Quarter: 2004Q2

REPORT INFORMATION
  Report Type: 
  Country: None (occurrence: None)
  Receive Date: 20040405
  Receipt Date: 20040318
  Transmission Date: 20050107
  Serious: Yes (Other)
  Sender: FDA-Public Use
  Company Number: A0503595A

PATIENT
  Age: 71 Year
  Sex: Female
  Weight: 61.281 kg

DRUGS (4)
  1. NICODERM CQ [Suspect]
     Indication: EX-SMOKER
     Dosage: 21 MG / SINGLE DOSE / TRANSDERMAL
     Route: 062
     Dates: start: 20040308, end: 20040308
  2. PHENYTOIN [Concomitant]
  3. PHENOBARBITONE [Concomitant]
  4. PRIMIDONE [Concomitant]

REACTIONS (4)
  - DISORIENTATION [None]
  - DYSPNOEA [None]
  - LUNG DISORDER [None]
  - PAIN [None]
